FAERS Safety Report 8450613-5 (Version None)
Quarter: 2012Q2

REPORT INFORMATION
  Report Type: 
  Country: None (occurrence: None)
  Receive Date: 20120620
  Receipt Date: 20120611
  Transmission Date: 20120825
  Serious: Yes (Hospitalization)
  Sender: FDA-Public Use
  Company Number: FR-ASTRAZENECA-2012SE39357

PATIENT
  Sex: Male

DRUGS (18)
  1. VITAMIN K1 [Suspect]
     Indication: HAEMORRHAGE
     Route: 048
     Dates: start: 20120414, end: 20120414
  2. TAMSULOSIN HCL [Suspect]
     Indication: BENIGN PROSTATIC HYPERPLASIA
     Route: 048
     Dates: start: 20120414, end: 20120414
  3. SPIRIVA [Concomitant]
  4. NEXIUM [Concomitant]
  5. TRAMADOL HCL [Concomitant]
     Dates: start: 20120415
  6. KANOKAD [Suspect]
     Indication: HAEMORRHAGE
     Route: 042
     Dates: start: 20120414, end: 20120414
  7. ACETAMINOPHEN [Concomitant]
     Dates: start: 20120415, end: 20120421
  8. OMEPRAZOLE [Suspect]
     Indication: PROPHYLAXIS
     Route: 048
     Dates: start: 20120414, end: 20120414
  9. LASIX [Suspect]
     Route: 042
     Dates: start: 20120414, end: 20120414
  10. FLECAINIDE ACETATE [Concomitant]
  11. PREDNISONE TAB [Concomitant]
  12. SYMBICORT [Concomitant]
  13. NEO-MERCAZOLE TAB [Concomitant]
  14. XANAX [Concomitant]
  15. ACETAMINOPHEN AND TRAMADOL HCL [Concomitant]
  16. TAMSULOSIN HCL [Concomitant]
  17. PENTOXIFYLLINE [Concomitant]
     Route: 048
  18. OXAZEPAM [Concomitant]

REACTIONS (1)
  - HYPERTHERMIA [None]
